FAERS Safety Report 4727079-1 (Version None)
Quarter: 2005Q3

REPORT INFORMATION
  Report Type: 
  Country: None (occurrence: None)
  Receive Date: 20050726
  Receipt Date: 20050715
  Transmission Date: 20060218
  Serious: Yes (Hospitalization, Other)
  Sender: FDA-Public Use
  Company Number: US-2004-036630

PATIENT
  Age: 59 Year
  Sex: Female

DRUGS (5)
  1. BETASERON [Suspect]
     Indication: MULTIPLE SCLEROSIS
     Dosage: 8 MIU, EVERY 2D, SUBCUTANEOUS
     Route: 058
  2. BACLOFEN [Concomitant]
  3. DITROPAN /USA/ (OXYBUTYNIN) [Concomitant]
  4. FIBERCON (POLYCARBOPHIL CALCIUM) [Concomitant]
  5. STRESSTABS WITH ZINC (ZINC, TOCOPHERYL ACETATE) [Concomitant]

REACTIONS (10)
  - ANAEMIA [None]
  - BREAST CANCER FEMALE [None]
  - DECUBITUS ULCER [None]
  - LEUKOCYTOSIS [None]
  - PARAPARESIS [None]
  - PYREXIA [None]
  - SEPSIS [None]
  - STAPHYLOCOCCAL INFECTION [None]
  - THROMBOSIS [None]
  - WHITE BLOOD CELL COUNT DECREASED [None]
